FAERS Safety Report 11754568 (Version 4)
Quarter: 2016Q1

REPORT INFORMATION
  Report Type: Spontaneous
  Country: US (occurrence: US)
  Receive Date: 20151119
  Receipt Date: 20160211
  Transmission Date: 20160525
  Serious: Yes (Other)
  Sender: FDA-Public Use
  Company Number: US-PFIZER INC-2015388724

PATIENT
  Age: 61 Year
  Sex: Female
  Weight: 76 kg

DRUGS (4)
  1. ATORVASTATIN CALCIUM. [Suspect]
     Active Substance: ATORVASTATIN CALCIUM
     Indication: BLOOD CHOLESTEROL
     Dosage: 5 MG, 1X/DAY (AT NIGHT)
     Route: 048
     Dates: start: 2015
  2. LIPITOR [Suspect]
     Active Substance: ATORVASTATIN CALCIUM
     Indication: HYPERLIPIDAEMIA
     Dosage: 10 MG, DAILY
     Route: 048
     Dates: start: 201501, end: 201506
  3. ATORVASTATIN CALCIUM. [Suspect]
     Active Substance: ATORVASTATIN CALCIUM
     Indication: MYALGIA
     Dosage: 10 MG, ALTERNATE DAY (EVERY OTHER DAY AT NIGHT)
     Route: 048
     Dates: start: 201507
  4. ATORVASTATIN CALCIUM. [Suspect]
     Active Substance: ATORVASTATIN CALCIUM
     Indication: HYPERLIPIDAEMIA
     Dosage: 10 MG, DAILY
     Route: 048
     Dates: start: 201506, end: 201511

REACTIONS (5)
  - Arthralgia [Unknown]
  - Drug ineffective [Not Recovered/Not Resolved]
  - Mental impairment [Not Recovered/Not Resolved]
  - Myalgia [Recovered/Resolved]
  - Anxiety [Unknown]

NARRATIVE: CASE EVENT DATE: 201504
